FAERS Safety Report 24837058 (Version 3)
Quarter: 2025Q4

REPORT INFORMATION
  Report Type: Spontaneous
  Country: EU (occurrence: EU)
  Receive Date: 20250113
  Receipt Date: 20251119
  Transmission Date: 20260118
  Serious: Yes (Hospitalization)
  Sender: AMGEN
  Company Number: EU-AMGEN-NLDSP2025002959

PATIENT
  Age: 63 Year
  Sex: Male

DRUGS (2)
  1. BEVACIZUMAB [Suspect]
     Active Substance: BEVACIZUMAB
     Indication: Metastases to lymph nodes
     Dosage: 1250 MILLIGRAM, Q3WK (ON 06/DEC/2024, RECEIVED MOST RECENT DOSE OF BEVACIZUMAB PRIOR TO AE)
     Route: 040
     Dates: start: 20240119
  2. ATEZOLIZUMAB [Suspect]
     Active Substance: ATEZOLIZUMAB
     Indication: Metastases to lymph nodes
     Dosage: 1200 MILLIGRAM, Q3WK, (ON 06/DEC/2024, RECEIVED MOST RECENT DOSE OF ATEZOLIZUMAB PRIOR TO AE)
     Route: 040
     Dates: start: 20240119

REACTIONS (1)
  - Nephritis [Recovered/Resolved]

NARRATIVE: CASE EVENT DATE: 20241227
